FAERS Safety Report 6895276-5 (Version None)
Quarter: 2010Q3

REPORT INFORMATION
  Report Type: 
  Country: None (occurrence: None)
  Receive Date: 20100802
  Receipt Date: 20100729
  Transmission Date: 20110219
  Serious: Yes (Disabling)
  Sender: FDA-Public Use
  Company Number: CA-MERCK-1006USA01874

PATIENT
  Age: 24 Month
  Sex: Male
  Weight: 11 kg

DRUGS (1)
  1. SINGULAIR [Suspect]
     Indication: HYPERSENSITIVITY
     Route: 048
     Dates: start: 20080201, end: 20090801

REACTIONS (7)
  - AGGRESSION [None]
  - FEAR [None]
  - HALLUCINATION [None]
  - INSOMNIA [None]
  - NIGHTMARE [None]
  - OVERDOSE [None]
  - PERSONALITY CHANGE [None]
